FAERS Safety Report 8619191-1 (Version None)
Quarter: 2012Q3

REPORT INFORMATION
  Report Type: 
  Country: None (occurrence: None)
  Receive Date: 20120824
  Receipt Date: 20120813
  Transmission Date: 20120928
  Serious: Yes (Hospitalization)
  Sender: FDA-Public Use
  Company Number: FR-CELGENEUS-056-21880-11032497

PATIENT
  Sex: Female

DRUGS (9)
  1. LASIX [Concomitant]
     Route: 065
  2. NEFOPAM [Concomitant]
     Route: 065
  3. REVLIMID [Suspect]
     Dosage: 5 MILLIGRAM
     Route: 048
     Dates: start: 20110110, end: 20110114
  4. AMLODIPINE [Concomitant]
     Route: 065
  5. REVLIMID [Suspect]
     Route: 048
     Dates: start: 20110222
  6. RAMIPRIL [Concomitant]
     Route: 065
  7. REVLIMID [Suspect]
     Route: 048
     Dates: start: 20101201
  8. REVLIMID [Suspect]
     Route: 048
     Dates: start: 20110316
  9. NEXIUM [Concomitant]
     Route: 065

REACTIONS (3)
  - HEPATITIS CHOLESTATIC [None]
  - PYREXIA [None]
  - ANAEMIA [None]
